FAERS Safety Report 4555990-3 (Version None)
Quarter: 2005Q1

REPORT INFORMATION
  Report Type: 
  Country: None (occurrence: None)
  Receive Date: 20050118
  Receipt Date: 20041110
  Transmission Date: 20050727
  Serious: Yes (Other)
  Sender: FDA-Public Use
  Company Number: US-2004-034883

PATIENT
  Age: 37 Year
  Sex: Female

DRUGS (1)
  1. ULTRAVIST (PHARMACY BULK) [Suspect]
     Indication: COMPUTERISED TOMOGRAM ABDOMEN
     Dosage: 125 ML, 1 DOSE, INTRAVENOUS
     Route: 042
     Dates: start: 20041021, end: 20041021

REACTIONS (7)
  - BLOOD PRESSURE DECREASED [None]
  - BURNING SENSATION [None]
  - EYE SWELLING [None]
  - FLUSHING [None]
  - PRURITUS [None]
  - TREMOR [None]
  - URTICARIA LOCALISED [None]
